FAERS Safety Report 13234177 (Version 1)
Quarter: 2017Q1

REPORT INFORMATION
  Report Type: Spontaneous
  Country: US (occurrence: US)
  Receive Date: 20170215
  Receipt Date: 20170215
  Transmission Date: 20170428
  Serious: Yes (Hospitalization)
  Sender: FDA-Public Use
  Company Number: None

PATIENT
  Sex: Female

DRUGS (6)
  1. LANSOPRAZOLE. [Suspect]
     Active Substance: LANSOPRAZOLE
  2. PANTOPRAZOLE [Suspect]
     Active Substance: PANTOPRAZOLE SODIUM
  3. CIPROFLOXACIN. [Suspect]
     Active Substance: CIPROFLOXACIN
  4. OMEPRAZOLE. [Suspect]
     Active Substance: OMEPRAZOLE
  5. CEFUROXIME. [Suspect]
     Active Substance: CEFUROXIME
  6. DAPTOMYCIN. [Suspect]
     Active Substance: DAPTOMYCIN

REACTIONS (6)
  - Clostridium difficile infection [None]
  - Hyponatraemia [None]
  - Dehydration [None]
  - Septic shock [None]
  - Hypotension [None]
  - Acute kidney injury [None]

NARRATIVE: CASE EVENT DATE: 20150326
